FAERS Safety Report 15197116 (Version 1)
Quarter: 2018Q3

REPORT INFORMATION
  Report Type: Spontaneous
  Country: US (occurrence: US)
  Receive Date: 20180725
  Receipt Date: 20180725
  Transmission Date: 20181010
  Serious: No
  Sender: FDA-Public Use
  Company Number: US-SEBELA IRELAND LIMITED-2017SEB00389

PATIENT

DRUGS (1)
  1. PEXEVA [Suspect]
     Active Substance: PAROXETINE MESYLATE
     Dosage: UNK

REACTIONS (1)
  - Insomnia [Not Recovered/Not Resolved]
